FAERS Safety Report 21394120 (Version 1)
Quarter: 2022Q3

REPORT INFORMATION
  Report Type: Spontaneous
  Country: FR (occurrence: FR)
  Receive Date: 20220930
  Receipt Date: 20220930
  Transmission Date: 20221027
  Serious: Yes (Hospitalization, Other)
  Sender: FDA-Public Use
  Company Number: None

PATIENT
  Age: 56 Year
  Sex: Male

DRUGS (3)
  1. TRAMADOL HYDROCHLORIDE [Suspect]
     Active Substance: TRAMADOL HYDROCHLORIDE
     Indication: Product used for unknown indication
     Dosage: 14 DOSAGE FORM, 1/DAY
     Route: 048
  2. XANAX [Suspect]
     Active Substance: ALPRAZOLAM
     Indication: Product used for unknown indication
     Dosage: UNK
     Route: 048
     Dates: start: 2016
  3. XANAX [Suspect]
     Active Substance: ALPRAZOLAM
     Dosage: 4 GRAM, 1/DAY
     Route: 065
     Dates: start: 202101

REACTIONS (5)
  - Intentional product misuse [Recovering/Resolving]
  - Drug detoxification [Recovering/Resolving]
  - Memory impairment [Not Recovered/Not Resolved]
  - Drug dependence [Recovering/Resolving]
  - Overdose [Unknown]

NARRATIVE: CASE EVENT DATE: 20210406
